FAERS Safety Report 4705948-6 (Version None)
Quarter: 2005Q2

REPORT INFORMATION
  Report Type: 
  Country: None (occurrence: None)
  Receive Date: 20050628
  Receipt Date: 20040929
  Transmission Date: 20051028
  Serious: Yes (Life-Threatening)
  Sender: FDA-Public Use
  Company Number: VISP-PR-0409S-0345

PATIENT
  Age: 67 Year
  Sex: Female

DRUGS (4)
  1. VISIPAQUE [Suspect]
     Indication: CORONARY ARTERY DISEASE
     Dosage: 50 ML, SINGLE DOSE, CORONARY
     Dates: start: 20040929, end: 20040929
  2. METHYLPREDNISOLONE SODIUM SUCCINATE (SOLUMEDROL) [Concomitant]
  3. BENADRYL [Concomitant]
  4. TAGAMET [Concomitant]

REACTIONS (1)
  - ANAPHYLACTIC REACTION [None]
